FAERS Safety Report 8163300-8 (Version None)
Quarter: 2012Q1

REPORT INFORMATION
  Report Type: 
  Country: None (occurrence: None)
  Receive Date: 20120224
  Receipt Date: 20110504
  Transmission Date: 20120608
  Serious: No
  Sender: FDA-Public Use
  Company Number: US-PFIZER INC-K201100546

PATIENT
  Age: 70 Year
  Sex: Female

DRUGS (5)
  1. FLAGYL [Suspect]
     Indication: DIVERTICULITIS
     Dosage: UNK
     Dates: end: 20110501
  2. FLECTOR [Suspect]
     Indication: PAIN IN EXTREMITY
     Dosage: 1 PATCH, SINGLE
     Route: 061
     Dates: start: 20110502, end: 20110502
  3. CIPROFLOXACIN [Suspect]
     Indication: DIVERTICULITIS
     Dosage: UNK
     Dates: end: 20110501
  4. LEVOFLOXACIN [Suspect]
     Indication: DIVERTICULITIS
     Dosage: UNK
     Dates: end: 20110501
  5. VICODIN [Concomitant]
     Indication: PAIN IN EXTREMITY
     Dosage: UNK

REACTIONS (3)
  - VULVOVAGINAL ERYTHEMA [None]
  - VULVOVAGINAL PRURITUS [None]
  - VULVOVAGINAL BURNING SENSATION [None]
